FAERS Safety Report 18866902 (Version 3)
Quarter: 2021Q1

REPORT INFORMATION
  Report Type: Spontaneous
  Country: BR (occurrence: BR)
  Receive Date: 20210208
  Receipt Date: 20210317
  Transmission Date: 20210420
  Serious: Yes (Hospitalization, Other)
  Sender: FDA-Public Use
  Company Number: BR-AMGEN-BRASP2012015043

PATIENT
  Age: 55 Year
  Sex: Female
  Weight: 98 kg

DRUGS (4)
  1. CAPTOPRIL. [Concomitant]
     Active Substance: CAPTOPRIL
     Dosage: UNK
  2. ASSERT [Concomitant]
     Active Substance: SERTRALINE HYDROCHLORIDE
     Dosage: UNK
  3. ENBREL [Suspect]
     Active Substance: ETANERCEPT
     Indication: RHEUMATOID ARTHRITIS
     Dosage: 50 MILLIGRAM, QWK
     Route: 058
     Dates: start: 201112
  4. FRONTAL [Concomitant]
     Active Substance: ALPRAZOLAM
     Dosage: UNK

REACTIONS (4)
  - Dengue fever [Unknown]
  - Cataract [Unknown]
  - Injection site pain [Unknown]
  - Injection site pruritus [Unknown]

NARRATIVE: CASE EVENT DATE: 201112
